FAERS Safety Report 4608732-7 (Version None)
Quarter: 2005Q1

REPORT INFORMATION
  Report Type: 
  Country: None (occurrence: None)
  Receive Date: 20050315
  Receipt Date: 20050228
  Transmission Date: 20050727
  Serious: Yes (Hospitalization)
  Sender: FDA-Public Use
  Company Number: JP-ROCHE-398260

PATIENT
  Age: 84 Year
  Sex: Female

DRUGS (12)
  1. TAMIFLU [Suspect]
     Route: 048
     Dates: start: 20050225, end: 20050225
  2. TAMIFLU [Suspect]
     Route: 048
     Dates: start: 20050221, end: 20050224
  3. MUCOSTA [Concomitant]
     Indication: DRUG USE FOR UNKNOWN INDICATION
     Route: 048
     Dates: start: 20040329
  4. IFENPRODIL TARTRATE [Concomitant]
     Indication: DRUG USE FOR UNKNOWN INDICATION
     Route: 048
     Dates: start: 20040329
  5. ATORVASTATIN CALCIUM [Concomitant]
     Indication: DRUG USE FOR UNKNOWN INDICATION
     Route: 048
     Dates: start: 20040506
  6. ETHYL ICOSAPENTATE [Concomitant]
     Indication: DRUG USE FOR UNKNOWN INDICATION
     Route: 048
     Dates: start: 20040506
  7. LAMISIL [Concomitant]
     Indication: DRUG USE FOR UNKNOWN INDICATION
     Route: 048
     Dates: start: 20040726
  8. FAMOTIDINE [Concomitant]
     Indication: DRUG USE FOR UNKNOWN INDICATION
     Dosage: DRUG NAME UNKNOWN
     Route: 048
     Dates: start: 20040803
  9. PENTICILLIN [Concomitant]
     Indication: DRUG USE FOR UNKNOWN INDICATION
     Dosage: FIRST THERAPY WAS 21-22 FEB 2005, TDD 2GRAMS. SECOND THERAPY WAS 23-23 FEB 2005 TDD 1 GRAM.
     Route: 042
     Dates: start: 20050221, end: 20050223
  10. ALPROSTADIL [Concomitant]
     Indication: DRUG USE FOR UNKNOWN INDICATION
     Route: 042
     Dates: start: 20050223, end: 20050225
  11. BIAPENEM [Concomitant]
     Indication: DRUG USE FOR UNKNOWN INDICATION
     Dosage: FIRST THERAPY: 23-23 FEB 2005, 0.3 GRAM ONCE A DAY. SECOND THERAPY: 24-24 FEB 2005, 0.3 GRAM TWICE +
     Route: 041
     Dates: start: 20050223, end: 20050225
  12. SULPYRINE [Concomitant]
     Indication: DRUG USE FOR UNKNOWN INDICATION
     Route: 030
     Dates: start: 20050223, end: 20050223

REACTIONS (1)
  - WHITE BLOOD CELL COUNT DECREASED [None]
